FAERS Safety Report 14172681 (Version 1)
Quarter: 2017Q4

REPORT INFORMATION
  Report Type: Spontaneous
  Country: US (occurrence: None)
  Receive Date: 20171108
  Receipt Date: 20171108
  Transmission Date: 20180321
  Serious: Yes (Other)
  Sender: FDA-Public Use
  Company Number: None

PATIENT
  Age: 68 Year
  Sex: Female
  Weight: 57.61 kg

DRUGS (3)
  1. BIOTIN [Concomitant]
     Active Substance: BIOTIN
  2. OXYBUTYNIN. [Suspect]
     Active Substance: OXYBUTYNIN CHLORIDE
     Indication: HYPERTONIC BLADDER
     Dosage: ROUTE - TOOK 2X DAILY BY MOUTH?FREQUENCY - 2 TO 3X PER DAY
     Route: 048
     Dates: start: 20171021, end: 20171024
  3. CALCIUM MAGNESIUM ZINC W/D3 [Concomitant]

REACTIONS (3)
  - Chest pain [None]
  - Dry mouth [None]
  - Diarrhoea [None]

NARRATIVE: CASE EVENT DATE: 20171024
